FAERS Safety Report 5329789-4 (Version None)
Quarter: 2007Q2

REPORT INFORMATION
  Report Type: 
  Country: None (occurrence: None)
  Receive Date: 20070521
  Receipt Date: 20070509
  Transmission Date: 20071010
  Serious: Yes (Other)
  Sender: FDA-Public Use
  Company Number: FR-AMGEN-US224997

PATIENT
  Age: 36 Year
  Sex: Female
  Weight: 39 kg

DRUGS (1)
  1. ENBREL [Suspect]
     Dosage: UNKNOWN
     Route: 050
     Dates: start: 20060715

REACTIONS (6)
  - ABORTION INDUCED [None]
  - DRUG EXPOSURE DURING PREGNANCY [None]
  - METRORRHAGIA [None]
  - PREGNANCY [None]
  - RETAINED PLACENTA OR MEMBRANES [None]
  - TRANSMISSION OF DRUG VIA SEMEN [None]
